FAERS Safety Report 7591719-2 (Version None)
Quarter: 2011Q3

REPORT INFORMATION
  Report Type: 
  Country: None (occurrence: None)
  Receive Date: 20110706
  Receipt Date: 20110621
  Transmission Date: 20111222
  Serious: Yes (Hospitalization)
  Sender: FDA-Public Use
  Company Number: US-BAYER-2011-002993

PATIENT
  Age: 21 Year
  Sex: Female
  Weight: 86.168 kg

DRUGS (5)
  1. MOTRIN [Concomitant]
  2. ADVIL LIQUI-GELS [Concomitant]
  3. ACCUTANE [Concomitant]
  4. YAZ [Suspect]
     Indication: ACNE
  5. YAZ [Suspect]
     Indication: CONTRACEPTION
     Dosage: UNK
     Dates: start: 20080701, end: 20100201

REACTIONS (4)
  - CHOLECYSTITIS CHRONIC [None]
  - CHOLECYSTITIS ACUTE [None]
  - GALLBLADDER INJURY [None]
  - PAIN [None]
